FAERS Safety Report 4462316-2 (Version None)
Quarter: 2004Q3

REPORT INFORMATION
  Report Type: 
  Country: None (occurrence: None)
  Receive Date: 20040929
  Receipt Date: 20040803
  Transmission Date: 20050211
  Serious: Yes (Hospitalization, Other)
  Sender: FDA-Public Use
  Company Number: DE-BRISTOL-MYERS SQUIBB COMPANY-12658795

PATIENT
  Age: 73 Year
  Sex: Female
  Weight: 47 kg

DRUGS (2)
  1. TAXOL [Suspect]
     Indication: NON-SMALL CELL LUNG CANCER
     Dosage: REC'D 3 TIMES FROM 07 TO 21-JUL-2004
     Route: 042
     Dates: start: 20040721, end: 20040721
  2. CARBOPLATIN [Suspect]
     Indication: NON-SMALL CELL LUNG CANCER
     Route: 042
     Dates: start: 20040707, end: 20040707

REACTIONS (6)
  - CEREBRAL ISCHAEMIA [None]
  - DEHYDRATION [None]
  - DIARRHOEA [None]
  - METASTASES TO CENTRAL NERVOUS SYSTEM [None]
  - PERIPHERAL PARALYSIS [None]
  - VOMITING [None]
